FAERS Safety Report 5909111-2 (Version None)
Quarter: 2008Q4

REPORT INFORMATION
  Report Type: 
  Country: None (occurrence: None)
  Receive Date: 20081001
  Receipt Date: 20080916
  Transmission Date: 20090506
  Serious: Yes (Other)
  Sender: FDA-Public Use
  Company Number: S08-GER-02162-01

PATIENT
  Age: 34 Year
  Sex: Female

DRUGS (4)
  1. ESCITALOPRAM [Suspect]
     Indication: DEPRESSION
     Dosage: 10 MG (10MG, 1 IN 1 D), ORAL
     Route: 048
     Dates: start: 20060101, end: 20080101
  2. INSIDON [Concomitant]
  3. ETILEFRIN [Concomitant]
     Indication: DISEASE RECURRENCE
  4. BEROTEC [Concomitant]

REACTIONS (2)
  - OSTEOPOROSIS [None]
  - RIB FRACTURE [None]
